FAERS Safety Report 8290790-2 (Version None)
Quarter: 2012Q2

REPORT INFORMATION
  Report Type: 
  Country: None (occurrence: None)
  Receive Date: 20120417
  Receipt Date: 20120404
  Transmission Date: 20120825
  Serious: Yes (Hospitalization)
  Sender: FDA-Public Use
  Company Number: BR-ROCHE-681832

PATIENT
  Sex: Female
  Weight: 52 kg

DRUGS (16)
  1. ACTEMRA [Suspect]
     Indication: RHEUMATOID ARTHRITIS
     Dosage: LAST DOSE PRIOR TO SAE: 28 DEC 2009, FREQUENCY:EVERY 4 WEEKS AS PER PROTOCOL.TEMPORARILY INTERRUPTED
     Route: 042
     Dates: start: 20091130, end: 20100125
  2. OMEPRAZOLE [Concomitant]
  3. ENALAPRIL MALEATE [Concomitant]
  4. METHOTREXATE [Suspect]
     Indication: RHEUMATOID ARTHRITIS
     Dosage: LAST DOSE PRIOR TO SAE: 28 DEC 2009, TEMPORARILY INTERRUPTED
     Route: 048
     Dates: start: 20091130, end: 20100125
  5. ACTEMRA [Suspect]
     Route: 042
  6. METHOTREXATE [Suspect]
     Route: 048
  7. ASPIRIN [Concomitant]
  8. PRAVASTATIN [Concomitant]
  9. METOPROLOL TARTRATE [Concomitant]
  10. FOLIC ACID [Concomitant]
  11. ISONIAZID [Concomitant]
  12. VITAMIN D [Concomitant]
  13. METFORMIN HCL [Concomitant]
  14. CLOPIDOGREL [Concomitant]
     Dates: start: 20100125, end: 20100128
  15. CALCIUM CARBONATE [Concomitant]
  16. SIMVASTATIN [Concomitant]

REACTIONS (2)
  - CARDIOMYOPATHY [None]
  - ACUTE MYOCARDIAL INFARCTION [None]
